FAERS Safety Report 15563629 (Version 1)
Quarter: 2018Q4

REPORT INFORMATION
  Report Type: Report from Study
  Country: US (occurrence: US)
  Receive Date: 20181029
  Receipt Date: 20181029
  Transmission Date: 20190205
  Serious: Yes (Hospitalization)
  Sender: FDA-Public Use
  Company Number: US-TEVA-2018-US-968114

PATIENT
  Sex: Female

DRUGS (1)
  1. COPAXONE [Suspect]
     Active Substance: GLATIRAMER ACETATE
     Indication: MULTIPLE SCLEROSIS
     Route: 058
     Dates: start: 20180309

REACTIONS (10)
  - Chest pain [Unknown]
  - Nausea [Unknown]
  - Cardiac flutter [Unknown]
  - Dyspnoea [Not Recovered/Not Resolved]
  - Palpitations [Not Recovered/Not Resolved]
  - Musculoskeletal pain [Unknown]
  - Defaecation urgency [Unknown]
  - Ventricular extrasystoles [Unknown]
  - Micturition urgency [Unknown]
  - Vomiting [Unknown]

NARRATIVE: CASE EVENT DATE: 2018
